FAERS Safety Report 6620469-1 (Version None)
Quarter: 2010Q1

REPORT INFORMATION
  Report Type: 
  Country: None (occurrence: None)
  Receive Date: 20100308
  Receipt Date: 20100308
  Transmission Date: 20100710
  Serious: Yes (Hospitalization)
  Sender: FDA-Public Use
  Company Number: None

PATIENT
  Age: 77 Year
  Sex: Male
  Weight: 98 kg

DRUGS (2)
  1. COUMADIN [Suspect]
     Dosage: 4MG DAILY PO
     Route: 048
  2. MOBIC [Suspect]
     Dosage: 15MG DAILY PO
     Route: 048

REACTIONS (2)
  - HAEMORRHAGIC ANAEMIA [None]
  - RECTAL HAEMORRHAGE [None]
